FAERS Safety Report 16536244 (Version 1)
Quarter: 2019Q3

REPORT INFORMATION
  Report Type: Spontaneous
  Country: US (occurrence: US)
  Receive Date: 20190705
  Receipt Date: 20190705
  Transmission Date: 20191004
  Serious: No
  Sender: FDA-Public Use
  Company Number: US-PFIZER INC-2019288738

PATIENT
  Age: 55 Year
  Sex: Female

DRUGS (1)
  1. IBRANCE [Suspect]
     Active Substance: PALBOCICLIB
     Dosage: 100 MG, CYCLIC, DAYS 1-21, EVERY 28 DAYS. (3 WEEKS ON/1 WEEK OFF)
     Route: 048
     Dates: start: 201906

REACTIONS (1)
  - Neoplasm progression [Unknown]
